FAERS Safety Report 18125425 (Version 2)
Quarter: 2020Q4

REPORT INFORMATION
  Report Type: Spontaneous
  Country: FR (occurrence: FR)
  Receive Date: 20200807
  Receipt Date: 20201130
  Transmission Date: 20210113
  Serious: Yes (Other)
  Sender: FDA-Public Use
  Company Number: FR-CELGENEUS-FRA-20180309903

PATIENT
  Age: 55 Year
  Sex: Female
  Weight: 65 kg

DRUGS (3)
  1. XELODA [Concomitant]
     Active Substance: CAPECITABINE
     Indication: BREAST CANCER METASTATIC
     Dosage: 4 DOSAGE FORMS
     Route: 048
     Dates: start: 20170727
  2. ABRAXANE [Suspect]
     Active Substance: PACLITAXEL
     Indication: BREAST CANCER METASTATIC
     Route: 041
     Dates: start: 201704, end: 201707
  3. XELODA [Concomitant]
     Active Substance: CAPECITABINE
     Route: 048

REACTIONS (3)
  - Morphoea [Recovering/Resolving]
  - Onycholysis [Recovered/Resolved]
  - Palmar-plantar erythrodysaesthesia syndrome [Recovered/Resolved]

NARRATIVE: CASE EVENT DATE: 20170823
